FAERS Safety Report 17763133 (Version 1)
Quarter: 2020Q2

REPORT INFORMATION
  Report Type: Report from Study
  Country: None (occurrence: US)
  Receive Date: 20200508
  Receipt Date: 20200508
  Transmission Date: 20200714
  Serious: Yes (Hospitalization, Other)
  Sender: FDA-Public Use
  Company Number: US-ABBVIE-20P-163-3392029-00

PATIENT
  Sex: Female

DRUGS (2)
  1. ELAGOLIX [Suspect]
     Active Substance: ELAGOLIX
     Indication: PRODUCT USED FOR UNKNOWN INDICATION
     Route: 048
     Dates: start: 201610
  2. IBUPROFEN. [Suspect]
     Active Substance: IBUPROFEN
     Indication: PAIN
     Route: 065

REACTIONS (5)
  - Procedural haemorrhage [Unknown]
  - Infection [Unknown]
  - Hysterectomy [Unknown]
  - Uterine leiomyoma [Unknown]
  - Blood pressure increased [Unknown]

NARRATIVE: CASE EVENT DATE: 2017
